FAERS Safety Report 7227154-6 (Version None)
Quarter: 2011Q1

REPORT INFORMATION
  Report Type: 
  Country: None (occurrence: None)
  Receive Date: 20110114
  Receipt Date: 20110110
  Transmission Date: 20110831
  Serious: Yes (Hospitalization)
  Sender: FDA-Public Use
  Company Number: US-ROCHE-752790

PATIENT
  Sex: Female
  Weight: 49.3 kg

DRUGS (15)
  1. PACLITAXEL [Suspect]
     Indication: NON-SMALL CELL LUNG CANCER
     Dosage: REGIMEN 1
     Route: 042
     Dates: start: 20101207
  2. OXYCODONE [Concomitant]
     Indication: PAIN
  3. ALPRAZOLAM [Concomitant]
  4. CARBOPLATIN [Suspect]
     Indication: NON-SMALL CELL LUNG CANCER
     Dosage: DOSE: 6 AUC, REGIMEN 1
     Route: 042
     Dates: start: 20101207
  5. XYZAL [Concomitant]
  6. ALBUTEROL [Concomitant]
     Indication: CHRONIC OBSTRUCTIVE PULMONARY DISEASE
  7. BEVACIZUMAB [Suspect]
     Indication: NON-SMALL CELL LUNG CANCER
     Dosage: REGIMEN 1
     Route: 042
     Dates: start: 20101207
  8. SPIRIVA [Concomitant]
  9. PROMETHAZINE [Concomitant]
     Indication: NAUSEA
  10. NASONEX [Concomitant]
  11. PROAIR HFA [Concomitant]
     Indication: CHRONIC OBSTRUCTIVE PULMONARY DISEASE
     Dates: start: 20101228
  12. ZANTAC [Concomitant]
     Indication: PROPHYLAXIS
  13. VENLAFAXINE [Concomitant]
     Indication: DEPRESSION
  14. SALINE [Concomitant]
     Dates: start: 20101228
  15. DEXAMETHASONE [Concomitant]
     Dates: start: 20101207

REACTIONS (1)
  - INTRAMEDULLARY ROD INSERTION [None]
